FAERS Safety Report 7970930-2 (Version None)
Quarter: 2011Q4

REPORT INFORMATION
  Report Type: 
  Country: None (occurrence: None)
  Receive Date: 20111122
  Receipt Date: 20110723
  Transmission Date: 20120403
  Serious: No
  Sender: FDA-Public Use
  Company Number: PHHY2011US37033

PATIENT
  Age: 25 Year
  Sex: Female
  Weight: 70.8 kg

DRUGS (7)
  1. GILENYA [Suspect]
     Indication: MULTIPLE SCLEROSIS
     Dosage: 0.5 MG, QD, ORAL
     Route: 048
     Dates: start: 20110425, end: 20110722
  2. VITAMIN D [Concomitant]
  3. FLUCONAZOLE [Concomitant]
  4. DESOGESTREL W/ETHINYLESTRADIOL (DESOGESTREL, ETHINYLESTRADIOL) [Concomitant]
  5. CALCIUM CARBONATE [Concomitant]
  6. ANTIVERT [Concomitant]
  7. FOLIC ACID [Concomitant]

REACTIONS (5)
  - NECK PAIN [None]
  - ASTHENIA [None]
  - BACK PAIN [None]
  - DYSPNOEA [None]
  - FATIGUE [None]
